FAERS Safety Report 8925422 (Version 4)
Quarter: 2013Q1

REPORT INFORMATION
  Report Type: Spontaneous
  Country: JP (occurrence: JP)
  Receive Date: 20121126
  Receipt Date: 20130201
  Transmission Date: 20140127
  Serious: Yes (Life-Threatening, Hospitalization)
  Sender: FDA-Public Use
  Company Number: JP-ROCHE-1156467

PATIENT
  Age: 65 Year
  Sex: Female
  Weight: 64 kg

DRUGS (20)
  1. RIVOTRIL [Suspect]
     Indication: CERVICOBRACHIAL SYNDROME
     Dosage: DOSAGE IS UNCERTAIN.
     Route: 048
     Dates: end: 20121024
  2. TARCEVA [Interacting]
     Indication: LUNG NEOPLASM MALIGNANT
     Route: 048
     Dates: start: 20121003, end: 20121020
  3. CLARITHROMYCIN [Interacting]
     Indication: BRONCHITIS
     Route: 048
     Dates: start: 20120625, end: 20121021
  4. ATORVASTATIN [Interacting]
     Indication: DYSLIPIDAEMIA
     Route: 048
     Dates: end: 20121024
  5. OMEPRAZOLE [Concomitant]
     Indication: GASTROOESOPHAGEAL REFLUX DISEASE
     Dosage: DOSAGE IS UNCERTAIN.
     Route: 048
     Dates: end: 20121024
  6. CODEINE PHOSPHATE [Concomitant]
     Indication: COUGH
     Dosage: DOSAGE IS UNCERTAIN.
     Route: 048
     Dates: end: 20121024
  7. SHAKUYAKU-KANZO-TO [Concomitant]
     Indication: MUSCLE SPASMS
     Dosage: DOSAGE IS UNCERTAIN.
     Route: 048
     Dates: end: 20121024
  8. ALINAMIN F [Concomitant]
     Indication: NEUROPATHY PERIPHERAL
     Dosage: DOSAGE IS UNCERTAIN.
     Route: 048
     Dates: end: 20121024
  9. FUROSEMIDE [Concomitant]
     Indication: CARDIAC FAILURE
     Dosage: DOSAGE IS UNCERTAIN.
     Route: 048
     Dates: end: 20121024
  10. EBRANTIL [Concomitant]
     Indication: DYSURIA
     Dosage: DOSAGE IS UNCERTAIN.
     Route: 048
     Dates: end: 20121024
  11. COLDRIN [Concomitant]
     Indication: COUGH
     Dosage: DOSAGE IS UNCERTAIN.
     Route: 048
     Dates: end: 20121024
  12. ETIZOLAM [Concomitant]
     Indication: SLEEP DISORDER
     Dosage: DOSAGE IS UNCERTAIN.
     Route: 048
     Dates: end: 20121024
  13. LOXOPROFEN [Concomitant]
     Indication: CERVICOBRACHIAL SYNDROME
     Dosage: DOSAGE IS UNCERTAIN.
     Route: 048
     Dates: end: 20121024
  14. MAGMITT [Concomitant]
     Indication: CONSTIPATION
     Dosage: DOSAGE IS UNCERTAIN.
     Route: 048
     Dates: end: 20121024
  15. BAYASPIRIN [Concomitant]
     Indication: PULMONARY EMBOLISM
     Dosage: DOSAGE IS UNCERTAIN.
     Route: 048
     Dates: end: 20121024
  16. GLORIAMIN [Concomitant]
     Indication: GASTRITIS
     Dosage: DOSAGE IS UNCERTAIN.
     Route: 048
     Dates: end: 20121024
  17. METHYCOBAL [Concomitant]
     Indication: NEUROPATHY PERIPHERAL
     Route: 048
     Dates: end: 20121024
  18. MYONAL [Concomitant]
     Indication: CERVICOBRACHIAL SYNDROME
     Route: 048
     Dates: end: 20121024
  19. EPERISONE HYDROCHLORIDE [Concomitant]
  20. LIMAPROST ALFADEX [Concomitant]

REACTIONS (5)
  - Drug interaction [Unknown]
  - Diarrhoea [Unknown]
  - Hypocalcaemia [Recovered/Resolved]
  - Ventricular tachycardia [Recovered/Resolved]
  - Electrocardiogram QT prolonged [Recovered/Resolved]
